FAERS Safety Report 6354187-4 (Version None)
Quarter: 2009Q3

REPORT INFORMATION
  Report Type: 
  Country: None (occurrence: None)
  Receive Date: 20090914
  Receipt Date: 20090903
  Transmission Date: 20100115
  Serious: Yes (Life-Threatening, Hospitalization, Other)
  Sender: FDA-Public Use
  Company Number: US-JNJFOC-20090706684

PATIENT
  Sex: Male
  Weight: 90.72 kg

DRUGS (20)
  1. REMICADE [Suspect]
     Indication: CROHN'S DISEASE
     Route: 042
     Dates: start: 20031219, end: 20081112
  2. REMICADE [Suspect]
     Indication: COLITIS ULCERATIVE
     Dosage: DOSE: 5-10 MG/KG OR 900 MG
     Route: 042
     Dates: start: 20031219, end: 20081112
  3. CIMZIA [Suspect]
     Indication: COLITIS ULCERATIVE
  4. CIMZIA [Suspect]
     Indication: CROHN'S DISEASE
     Dosage: FOR 6 MONTHS ANFTER INFLIXIMAB TREATMENT ENDED
  5. HUMIRA [Suspect]
     Indication: CROHN'S DISEASE
  6. HUMIRA [Suspect]
     Indication: COLITIS ULCERATIVE
     Dosage: RECEIVED 3 DOSES
  7. PREDNISONE [Concomitant]
     Indication: CROHN'S DISEASE
     Route: 048
  8. PREDNISONE [Concomitant]
     Indication: COLITIS ULCERATIVE
     Route: 048
  9. ASACOL [Concomitant]
     Indication: COLITIS ULCERATIVE
  10. IMURAN [Concomitant]
  11. IMURAN [Concomitant]
  12. IMURAN [Concomitant]
  13. IMURAN [Concomitant]
     Indication: COLITIS ULCERATIVE
  14. VITAMIN D [Concomitant]
  15. FLAGYL [Concomitant]
  16. TUMS [Concomitant]
  17. MULTIPLE VITAMIN [Concomitant]
  18. TYLENOL (CAPLET) [Concomitant]
  19. SINGULAIR [Concomitant]
  20. ALLEGRA [Concomitant]

REACTIONS (4)
  - METASTATIC NEOPLASM [None]
  - PORTAL VEIN THROMBOSIS [None]
  - RECTAL CANCER [None]
  - THROMBOSIS [None]
